FAERS Safety Report 12278472 (Version 1)
Quarter: 2016Q2

REPORT INFORMATION
  Report Type: Report from Study
  Country: NL (occurrence: NL)
  Receive Date: 20160418
  Receipt Date: 20160418
  Transmission Date: 20160815
  Serious: Yes (Other)
  Sender: FDA-Public Use
  Company Number: NL-ABBVIE-14P-114-1230268-00

PATIENT
  Age: 74 Year
  Sex: Male
  Weight: 110 kg

DRUGS (6)
  1. LUCRIN [Suspect]
     Active Substance: LEUPROLIDE ACETATE
     Indication: PROSTATE CANCER
     Route: 058
     Dates: start: 20060126, end: 201201
  2. SOTALOL. [Concomitant]
     Active Substance: SOTALOL
     Indication: CARDIAC FAILURE
     Dosage: ACCORDING SCHEDULE
     Route: 048
     Dates: start: 201310
  3. LUCRIN [Suspect]
     Active Substance: LEUPROLIDE ACETATE
     Indication: PROSTATE CANCER
     Route: 058
     Dates: start: 20120527
  4. CYPROTERON [Concomitant]
     Indication: PRODUCT USED FOR UNKNOWN INDICATION
     Dosage: UNKNOWN
     Route: 048
  5. ACENOCOUMAROL [Concomitant]
     Active Substance: ACENOCOUMAROL
     Indication: ANTICOAGULANT THERAPY
     Dosage: ACCORDING SCHEDULE
     Route: 048
     Dates: start: 201310
  6. CIPROFLOXACINE [Concomitant]
     Active Substance: CIPROFLOXACIN
     Indication: PRODUCT USED FOR UNKNOWN INDICATION
     Dosage: OMHULD
     Route: 048

REACTIONS (6)
  - Muscle fatigue [Not Recovered/Not Resolved]
  - Cardioversion [Unknown]
  - Hot flush [Recovering/Resolving]
  - Prostatic specific antigen increased [Not Recovered/Not Resolved]
  - Muscle spasms [Not Recovered/Not Resolved]
  - Metastases to prostate [Not Recovered/Not Resolved]

NARRATIVE: CASE EVENT DATE: 201205
